FAERS Safety Report 10754255 (Version 5)
Quarter: 2020Q2

REPORT INFORMATION
  Report Type: Spontaneous
  Country: DE (occurrence: DE)
  Receive Date: 20150202
  Receipt Date: 20200528
  Transmission Date: 20200713
  Serious: Yes (Hospitalization, Other)
  Sender: FDA-Public Use
  Company Number: DE-UCBSA-2015002202

PATIENT
  Age: 0 Year
  Sex: Female
  Weight: 2.4 kg

DRUGS (5)
  1. PHENYTOIN. [Suspect]
     Active Substance: PHENYTOIN
     Indication: EPILEPSY
     Dosage: 400 MG/D
     Route: 064
     Dates: start: 20140402, end: 20141126
  2. VALPROAT [Suspect]
     Active Substance: VALPROATE SODIUM
     Indication: EPILEPSY
     Dosage: 500 MG/D
     Route: 064
     Dates: start: 20140402, end: 20141126
  3. BETAMETHASONE. [Concomitant]
     Active Substance: BETAMETHASONE
     Indication: MATERNAL THERAPY TO ENHANCE FOETAL LUNG MATURITY
     Dosage: UNK
     Route: 064
     Dates: start: 2014, end: 2014
  4. LEVETIRACETAM. [Suspect]
     Active Substance: LEVETIRACETAM
     Indication: EPILEPSY
     Dosage: 1500 MG/D
     Route: 064
     Dates: start: 20140402, end: 20141126
  5. CLOBAZAM. [Suspect]
     Active Substance: CLOBAZAM
     Indication: EPILEPSY
     Dosage: 40 MG/D
     Route: 064
     Dates: start: 20140402, end: 20141126

REACTIONS (7)
  - Low birth weight baby [Unknown]
  - Selective eating disorder [Recovered/Resolved]
  - Premature baby [Unknown]
  - Weight gain poor [Unknown]
  - Respiratory disorder neonatal [Recovered/Resolved]
  - Bradycardia neonatal [Recovered/Resolved]
  - Maternal exposure during pregnancy [Unknown]

NARRATIVE: CASE EVENT DATE: 2014
